FAERS Safety Report 18689890 (Version 1)
Quarter: 2020Q4

REPORT INFORMATION
  Report Type: Spontaneous
  Country: HR (occurrence: HR)
  Receive Date: 20201231
  Receipt Date: 20201231
  Transmission Date: 20210114
  Serious: Yes (Life-Threatening, Other)
  Sender: FDA-Public Use
  Company Number: HR-US-PROVELL PHARMACEUTICALS LLC-E2B_90081823

PATIENT
  Age: 52 Year
  Sex: Female
  Weight: 86 kg

DRUGS (4)
  1. EUTHYROX [Suspect]
     Active Substance: LEVOTHYROXINE SODIUM
     Indication: THYROTOXIC CRISIS
     Route: 048
     Dates: start: 20190416, end: 20200225
  2. BYOL COR [Concomitant]
     Active Substance: BISOPROLOL FUMARATE
     Indication: ATRIAL FIBRILLATION
     Route: 048
     Dates: start: 20200128
  3. BYOL COR [Concomitant]
     Active Substance: BISOPROLOL FUMARATE
     Indication: ATRIAL FLUTTER
  4. LORATADINE. [Concomitant]
     Active Substance: LORATADINE
     Indication: SEASONAL ALLERGY

REACTIONS (3)
  - Chest discomfort [Recovered/Resolved with Sequelae]
  - Tachycardia paroxysmal [Recovered/Resolved with Sequelae]
  - Hormone level abnormal [Recovered/Resolved with Sequelae]

NARRATIVE: CASE EVENT DATE: 20200121
